FAERS Safety Report 13855408 (Version 1)
Quarter: 2017Q3

REPORT INFORMATION
  Report Type: Spontaneous
  Country: US (occurrence: US)
  Receive Date: 20170810
  Receipt Date: 20170810
  Transmission Date: 20171127
  Serious: No
  Sender: FDA-Public Use
  Company Number: US-VIFOR (INTERNATIONAL) INC.-VIT-2017-06922

PATIENT
  Sex: Male
  Weight: 56.75 kg

DRUGS (13)
  1. NEPHROCAPS [Concomitant]
     Active Substance: ASCORBIC ACID\BIOTIN\CYANOCOBALAMIN\FOLIC ACID\NIACIN\PANTOTHENIC ACID\PYRIDOXINE\RIBOFLAVIN\THIAMINE
  2. SODIUM BICARBONATE. [Concomitant]
     Active Substance: SODIUM BICARBONATE
  3. TRADJENTA [Concomitant]
     Active Substance: LINAGLIPTIN
  4. GEMFIBROZIL. [Concomitant]
     Active Substance: GEMFIBROZIL
  5. REPAGLINIDE. [Concomitant]
     Active Substance: REPAGLINIDE
  6. VELTASSA [Suspect]
     Active Substance: PATIROMER
     Indication: HYPERKALAEMIA
     Route: 048
  7. BENICAR [Concomitant]
     Active Substance: OLMESARTAN MEDOXOMIL
  8. DIALYVITE [Concomitant]
     Active Substance: ASCORBIC ACID\BIOTIN\CALCIUM PANTOTHENATE\COBALAMIN\FOLIC ACID\NIACINAMIDE\PYRIDOXINE HYDROCHLORIDE\RIBOFLAVIN\THIAMINE MONONITRATE
  9. HUMALOG [Concomitant]
     Active Substance: INSULIN LISPRO
  10. PLAVIX [Concomitant]
     Active Substance: CLOPIDOGREL BISULFATE
  11. NAMENDA [Concomitant]
     Active Substance: MEMANTINE HYDROCHLORIDE
  12. CILOSTAZOL. [Concomitant]
     Active Substance: CILOSTAZOL
  13. NOVOLOG [Concomitant]
     Active Substance: INSULIN ASPART

REACTIONS (3)
  - Feeling abnormal [Unknown]
  - Dizziness [Unknown]
  - Anaemia [Unknown]
